FAERS Safety Report 7329280-X (Version None)
Quarter: 2011Q1

REPORT INFORMATION
  Report Type: 
  Country: None (occurrence: None)
  Receive Date: 20110303
  Receipt Date: 20110225
  Transmission Date: 20110831
  Serious: Yes (Hospitalization)
  Sender: FDA-Public Use
  Company Number: B0697497A

PATIENT
  Sex: Female
  Weight: 69 kg

DRUGS (2)
  1. LAPATINIB [Suspect]
     Indication: BREAST CANCER
     Dosage: 1250MG PER DAY
     Route: 065
     Dates: start: 20100127
  2. DOCETAXEL [Suspect]
     Indication: BREAST CANCER
     Dosage: 171.8MG EVERY 3 WEEKS
     Route: 065
     Dates: start: 20100127

REACTIONS (6)
  - NEUTROPHIL COUNT DECREASED [None]
  - WHITE BLOOD CELL COUNT DECREASED [None]
  - PYREXIA [None]
  - INFECTION [None]
  - BLOOD CULTURE POSITIVE [None]
  - STAPHYLOCOCCAL INFECTION [None]
